FAERS Safety Report 7982119-1 (Version None)
Quarter: 2011Q4

REPORT INFORMATION
  Report Type: 
  Country: None (occurrence: None)
  Receive Date: 20111212
  Receipt Date: 20111202
  Transmission Date: 20120403
  Serious: Yes (Hospitalization, Other)
  Sender: FDA-Public Use
  Company Number: 2011SP025633

PATIENT
  Age: 27 Year
  Sex: Female
  Weight: 68.0396 kg

DRUGS (9)
  1. TOPICAL STEROID [Concomitant]
  2. NUVARING [Suspect]
     Indication: MENORRHAGIA
     Dates: start: 20081201
  3. NUVARING [Suspect]
     Indication: ENDOMETRIOSIS
     Dates: start: 20081201
  4. NUVARING [Suspect]
     Indication: MENORRHAGIA
     Dates: start: 20090201, end: 20090620
  5. NUVARING [Suspect]
     Indication: ENDOMETRIOSIS
     Dates: start: 20090201, end: 20090620
  6. NUVARING [Suspect]
     Indication: MENORRHAGIA
     Dates: start: 20050101
  7. NUVARING [Suspect]
     Indication: ENDOMETRIOSIS
     Dates: start: 20050101
  8. MULTI-VITAMIN [Concomitant]
  9. COUMADIN [Suspect]
     Indication: ANTICOAGULANT THERAPY
     Dates: start: 20090620, end: 20100101

REACTIONS (19)
  - PULMONARY EMBOLISM [None]
  - MYOCARDIAL INFARCTION [None]
  - PALPITATIONS [None]
  - ANXIETY [None]
  - VAGINAL HAEMORRHAGE [None]
  - DYSMENORRHOEA [None]
  - PLEURISY [None]
  - HEART RATE IRREGULAR [None]
  - ABASIA [None]
  - HAEMOPTYSIS [None]
  - HEPATOMEGALY [None]
  - DRUG INEFFECTIVE [None]
  - DIZZINESS [None]
  - PULMONARY HYPERTENSION [None]
  - PAIN [None]
  - MUSCLE SPASMS [None]
  - TACHYCARDIA [None]
  - DILATATION VENTRICULAR [None]
  - MITRAL VALVE INCOMPETENCE [None]
